FAERS Safety Report 10719577 (Version 4)
Quarter: 2018Q2

REPORT INFORMATION
  Report Type: Spontaneous
  Country: US (occurrence: US)
  Receive Date: 20150119
  Receipt Date: 20180514
  Transmission Date: 20180711
  Serious: Yes (Hospitalization)
  Sender: FDA-Public Use
  Company Number: US-UNITED THERAPEUTICS-UNT-2014-004609

PATIENT
  Sex: Female
  Weight: 88.44 kg

DRUGS (8)
  1. REMODULIN [Suspect]
     Active Substance: TREPROSTINIL
     Dosage: UNK
     Route: 041
  2. ORENITRAM [Suspect]
     Active Substance: TREPROSTINIL
     Indication: PULMONARY HYPERTENSION
     Dosage: 0.25 MG, Q8H
     Route: 048
     Dates: start: 20140714
  3. REMODULIN [Suspect]
     Active Substance: TREPROSTINIL
     Indication: PULMONARY ARTERIAL HYPERTENSION
     Dosage: 0.066 ?G/KG, CONTINUING
     Route: 058
     Dates: start: 20090430
  4. REMODULIN [Suspect]
     Active Substance: TREPROSTINIL
     Indication: PULMONARY HYPERTENSION
     Dosage: 0.035 ?G/KG, CONTINUING
     Route: 058
     Dates: start: 20090430
  5. ORENITRAM [Suspect]
     Active Substance: TREPROSTINIL
     Indication: PULMONARY ARTERIAL HYPERTENSION
     Dosage: 14.75 MG, TID
     Route: 048
     Dates: start: 20140704
  6. ORENITRAM [Suspect]
     Active Substance: TREPROSTINIL
     Dosage: 14 MG, Q8H
     Route: 048
     Dates: start: 20140714
  7. ORENITRAM [Suspect]
     Active Substance: TREPROSTINIL
     Dosage: 14.25 MG, TID
     Route: 048
     Dates: start: 20140714
  8. TRACLEER [Concomitant]
     Active Substance: BOSENTAN
     Indication: PRODUCT USED FOR UNKNOWN INDICATION

REACTIONS (16)
  - Hot flush [Unknown]
  - Syncope [Unknown]
  - Abdominal discomfort [Unknown]
  - Migraine [Unknown]
  - Hyperacusis [Unknown]
  - Flushing [Unknown]
  - Nausea [Unknown]
  - Headache [Unknown]
  - Oxygen saturation decreased [Unknown]
  - Photophobia [Unknown]
  - Fatigue [Unknown]
  - Vision blurred [Unknown]
  - Dyspnoea [Unknown]
  - Gait disturbance [Unknown]
  - Pallor [Unknown]
  - Asthenopia [Unknown]

NARRATIVE: CASE EVENT DATE: 2014
